FAERS Safety Report 7975058-3 (Version None)
Quarter: 2011Q4

REPORT INFORMATION
  Report Type: 
  Country: None (occurrence: None)
  Receive Date: 20111213
  Receipt Date: 20111027
  Transmission Date: 20120403
  Serious: No
  Sender: FDA-Public Use
  Company Number: US-AMGEN-USASP2011055908

PATIENT
  Age: 70 Year
  Sex: Female

DRUGS (2)
  1. ATIVAN [Concomitant]
     Dosage: UNK
  2. ENBREL [Suspect]
     Indication: RHEUMATOID ARTHRITIS
     Dosage: 50 MG, QWK
     Dates: start: 20110901

REACTIONS (6)
  - INJECTION SITE SCAB [None]
  - INJECTION SITE MACULE [None]
  - INJECTION SITE RASH [None]
  - SCAB [None]
  - RASH PAPULAR [None]
  - INJECTION SITE ERYTHEMA [None]
